FAERS Safety Report 8188018-7 (Version None)
Quarter: 2012Q1

REPORT INFORMATION
  Report Type: 
  Country: None (occurrence: None)
  Receive Date: 20120306
  Receipt Date: 20120221
  Transmission Date: 20120608
  Serious: Yes (Other)
  Sender: FDA-Public Use
  Company Number: US-WATSON-2012-03285

PATIENT
  Age: 51 Year
  Sex: Male

DRUGS (1)
  1. NORTRIPTYLINE HCL [Suspect]
     Indication: PAIN IN EXTREMITY
     Dosage: 50 MG, QHS
     Route: 065

REACTIONS (3)
  - DIZZINESS [None]
  - DYSPNOEA [None]
  - HYPERHIDROSIS [None]
